FAERS Safety Report 9903684 (Version 1)
Quarter: 2014Q1

REPORT INFORMATION
  Report Type: Report from Study
  Country: US (occurrence: US)
  Receive Date: 20140217
  Receipt Date: 20140217
  Transmission Date: 20141002
  Serious: Yes (Other)
  Sender: FDA-Public Use
  Company Number: US-ABBVIE-14P-163-1198958-00

PATIENT
  Age: 39 Year
  Sex: Female
  Weight: 72.64 kg

DRUGS (7)
  1. HUMIRA [Suspect]
     Indication: PSORIASIS
     Dates: start: 201207, end: 201207
  2. HUMIRA [Suspect]
  3. METHOTREXATE [Suspect]
     Indication: PSORIASIS
     Dates: start: 201307
  4. METHOTREXATE [Suspect]
  5. BENADRYL [Concomitant]
     Indication: PRURITUS
  6. BENADRYL [Concomitant]
     Indication: PSORIASIS
  7. FOLIC ACID [Concomitant]
     Indication: VITAMIN SUPPLEMENTATION

REACTIONS (13)
  - Myopia [Recovered/Resolved]
  - Dry eye [Recovering/Resolving]
  - Cyst [Recovered/Resolved]
  - Eye infection [Recovered/Resolved]
  - Drug ineffective [Not Recovered/Not Resolved]
  - Psoriasis [Recovering/Resolving]
  - Asthma [Not Recovered/Not Resolved]
  - Cough [Recovered/Resolved]
  - Nausea [Unknown]
  - Vomiting [Recovered/Resolved]
  - Nasopharyngitis [Recovered/Resolved]
  - Vitamin D decreased [Not Recovered/Not Resolved]
  - Headache [Recovered/Resolved]
